FAERS Safety Report 7001404-3 (Version None)
Quarter: 2010Q3

REPORT INFORMATION
  Report Type: 
  Country: None (occurrence: None)
  Receive Date: 20100920
  Receipt Date: 20100309
  Transmission Date: 20110219
  Serious: No
  Sender: FDA-Public Use
  Company Number: US-ASTRAZENECA-2009SE16749

PATIENT
  Age: 43 Year
  Sex: Female
  Weight: 98.9 kg

DRUGS (7)
  1. SEROQUEL [Suspect]
     Indication: SCHIZOPHRENIA
     Route: 048
     Dates: start: 20000101, end: 20030101
  2. SIMVASTATIN [Concomitant]
     Indication: BLOOD CHOLESTEROL INCREASED
  3. SIMVASTATIN [Concomitant]
     Indication: HYPERLIPIDAEMIA
  4. ABILIFY [Concomitant]
     Dates: start: 20090101
  5. GEODON [Concomitant]
     Dates: start: 20050101
  6. HALDOL [Concomitant]
     Dates: start: 19920101
  7. ZYPREXA [Concomitant]
     Dates: start: 19920101

REACTIONS (2)
  - OBESITY [None]
  - TYPE 2 DIABETES MELLITUS [None]
